FAERS Safety Report 13893110 (Version 1)
Quarter: 2017Q3

REPORT INFORMATION
  Report Type: Spontaneous
  Country: US (occurrence: US)
  Receive Date: 20170822
  Receipt Date: 20170822
  Transmission Date: 20171127
  Serious: Yes (Other)
  Sender: FDA-Public Use
  Company Number: US-ROCHE-1226745

PATIENT
  Sex: Female

DRUGS (4)
  1. CYTOXAN [Concomitant]
     Active Substance: CYCLOPHOSPHAMIDE
     Indication: BREAST CANCER
  2. TAXOL [Concomitant]
     Active Substance: PACLITAXEL
     Indication: BREAST CANCER
  3. HERCEPTIN [Suspect]
     Active Substance: TRASTUZUMAB
     Indication: BREAST CANCER
     Route: 065
  4. ADRIAMYCIN [Concomitant]
     Active Substance: DOXORUBICIN HYDROCHLORIDE
     Indication: BREAST CANCER

REACTIONS (10)
  - Insomnia [Unknown]
  - Oedema [Unknown]
  - Pneumonitis [Unknown]
  - Nausea [Unknown]
  - Weight increased [Recovering/Resolving]
  - Fibromyalgia [Unknown]
  - Cardiac failure [Unknown]
  - Arthralgia [Unknown]
  - Abdominal discomfort [Unknown]
  - Fatigue [Unknown]
